FAERS Safety Report 5222535-4 (Version None)
Quarter: 2007Q1

REPORT INFORMATION
  Report Type: 
  Country: None (occurrence: None)
  Receive Date: 20070129
  Receipt Date: 20070124
  Transmission Date: 20070707
  Serious: Yes (Death, Life-Threatening, Hospitalization, Other)
  Sender: FDA-Public Use
  Company Number: JP-BRISTOL-MYERS SQUIBB COMPANY-13429766

PATIENT
  Age: 38 Year
  Sex: Female

DRUGS (10)
  1. TAXOL [Suspect]
     Indication: BREAST CANCER
     Route: 041
     Dates: start: 20060627, end: 20060627
  2. HERCEPTIN [Suspect]
     Indication: BREAST CANCER RECURRENT
     Route: 041
     Dates: start: 20060626, end: 20060626
  3. DECADRON [Concomitant]
     Route: 041
     Dates: start: 20060627, end: 20060627
  4. FAMOTIDINE [Concomitant]
     Route: 041
     Dates: start: 20060626, end: 20060626
  5. KYTRIL [Concomitant]
     Route: 041
     Dates: start: 20060627, end: 20060627
  6. DIPHENHYDRAMINE HCL [Concomitant]
     Route: 048
     Dates: start: 20060626, end: 20060626
  7. BETAMETHASONE [Concomitant]
     Route: 048
     Dates: start: 20051118, end: 20060629
  8. VALPROATE SODIUM [Concomitant]
     Route: 048
     Dates: start: 20051111, end: 20060629
  9. MOBIC [Concomitant]
     Route: 048
     Dates: start: 20060626, end: 20060629
  10. LAFUTIDINE [Concomitant]
     Route: 048
     Dates: start: 20051108, end: 20060629

REACTIONS (9)
  - BLOOD GLUCOSE DECREASED [None]
  - CARDIAC ARREST [None]
  - DISSEMINATED INTRAVASCULAR COAGULATION [None]
  - HEADACHE [None]
  - HEPATIC FAILURE [None]
  - HYPOAESTHESIA [None]
  - RENAL FAILURE [None]
  - RESPIRATORY ARREST [None]
  - SHOCK [None]
